FAERS Safety Report 7236138-3 (Version None)
Quarter: 2011Q1

REPORT INFORMATION
  Report Type: 
  Country: None (occurrence: None)
  Receive Date: 20110120
  Receipt Date: 20110112
  Transmission Date: 20110831
  Serious: Yes (Other)
  Sender: FDA-Public Use
  Company Number: AU-JNJFOC-20110103747

PATIENT
  Sex: Male

DRUGS (6)
  1. STELARA [Suspect]
     Route: 058
  2. STELARA [Suspect]
     Route: 058
  3. CRESTOR [Concomitant]
  4. STELARA [Suspect]
     Indication: PSORIASIS
     Route: 058
  5. STELARA [Suspect]
     Route: 058
  6. STELARA [Suspect]
     Route: 058

REACTIONS (2)
  - PSORIASIS [None]
  - CHOLELITHIASIS [None]
